FAERS Safety Report 13472427 (Version 2)
Quarter: 2017Q2

REPORT INFORMATION
  Report Type: Spontaneous
  Country: US (occurrence: US)
  Receive Date: 20170424
  Receipt Date: 20170531
  Transmission Date: 20170830
  Serious: No
  Sender: FDA-Public Use
  Company Number: US-JNJFOC-20170420304

PATIENT
  Sex: Female

DRUGS (2)
  1. TYLENOL 8 HR ARTHRITIS PAIN [Suspect]
     Active Substance: ACETAMINOPHEN
     Indication: ARTHRITIS
     Route: 065
     Dates: end: 20170417
  2. TYLENOL 8 HR ARTHRITIS PAIN [Suspect]
     Active Substance: ACETAMINOPHEN
     Route: 065

REACTIONS (1)
  - Counterfeit drug administered [Unknown]
